FAERS Safety Report 6871039-1 (Version None)
Quarter: 2010Q3

REPORT INFORMATION
  Report Type: 
  Country: None (occurrence: None)
  Receive Date: 20100723
  Receipt Date: 20100715
  Transmission Date: 20110219
  Serious: Yes (Other)
  Sender: FDA-Public Use
  Company Number: US-PFIZER INC-2006155797

PATIENT
  Sex: Female
  Weight: 54 kg

DRUGS (8)
  1. CHANTIX [Suspect]
     Indication: SMOKING CESSATION THERAPY
     Dosage: 0.5 MG, 1X/DAY
     Dates: start: 20061101
  2. CHANTIX [Suspect]
     Dosage: 1 MG, UNK
  3. CHANTIX [Suspect]
     Dosage: 0.5 MG, UNK
  4. NICOTROL [Suspect]
     Indication: SMOKING CESSATION THERAPY
     Dosage: UNK
  5. VITAMINS [Concomitant]
  6. PROMETRIUM [Concomitant]
  7. ESTRADIOL [Concomitant]
  8. VOLTAREN [Concomitant]
     Indication: PAIN
     Dosage: 100 MG, UNK

REACTIONS (15)
  - ABDOMINAL DISTENSION [None]
  - ABDOMINAL PAIN UPPER [None]
  - ABNORMAL DREAMS [None]
  - BRONCHITIS [None]
  - DEPRESSED MOOD [None]
  - DIZZINESS [None]
  - DRUG INEFFECTIVE [None]
  - DYSGEUSIA [None]
  - ERUCTATION [None]
  - FEELING ABNORMAL [None]
  - FLATULENCE [None]
  - HYPOTENSION [None]
  - MALAISE [None]
  - NAUSEA [None]
  - SKIN EXFOLIATION [None]
